FAERS Safety Report 25720931 (Version 1)
Quarter: 2025Q3

REPORT INFORMATION
  Report Type: Report from Study
  Country: ZA (occurrence: ZA)
  Receive Date: 20250825
  Receipt Date: 20250825
  Transmission Date: 20251020
  Serious: Yes (Hospitalization, Other)
  Sender: ALEXION PHARMACEUTICALS
  Company Number: ZA-AstraZeneca-CH-00935236A

PATIENT
  Age: 61 Year
  Sex: Female

DRUGS (5)
  1. BUDESONIDE\FORMOTEROL [Suspect]
     Active Substance: BUDESONIDE\FORMOTEROL
  2. DORMONOCT [Concomitant]
     Active Substance: LOPRAZOLAM
     Indication: Sleep disorder
  3. LANSOPRAZOLE [Concomitant]
     Active Substance: LANSOPRAZOLE
     Indication: Ulcer
  4. Tramazac [Concomitant]
     Indication: Pain
  5. SUCRALFATE [Concomitant]
     Active Substance: SUCRALFATE
     Indication: Ulcer

REACTIONS (2)
  - Illness [Unknown]
  - Lung neoplasm malignant [Recovered/Resolved]
